FAERS Safety Report 13005340 (Version 2)
Quarter: 2017Q4

REPORT INFORMATION
  Report Type: Spontaneous
  Country: US (occurrence: US)
  Receive Date: 20161207
  Receipt Date: 20171003
  Transmission Date: 20180320
  Serious: Yes (Other)
  Sender: FDA-Public Use
  Company Number: US-AMGEN-USASP2016170564

PATIENT

DRUGS (5)
  1. HERCEPTIN [Concomitant]
     Active Substance: TRASTUZUMAB
  2. CARBOPLATIN. [Concomitant]
     Active Substance: CARBOPLATIN
  3. ARIMIDEX [Concomitant]
     Active Substance: ANASTROZOLE
  4. TAXOTERE [Concomitant]
     Active Substance: DOCETAXEL
  5. XGEVA [Suspect]
     Active Substance: DENOSUMAB
     Indication: PRODUCT USED FOR UNKNOWN INDICATION
     Dosage: UNK
     Route: 065
     Dates: end: 2016

REACTIONS (2)
  - Osteonecrosis of jaw [Unknown]
  - Adverse event [Unknown]
